FAERS Safety Report 11579886 (Version 1)
Quarter: 2015Q3

REPORT INFORMATION
  Report Type: Spontaneous
  Country: US (occurrence: US)
  Receive Date: 20150930
  Receipt Date: 20150930
  Transmission Date: 20151125
  Serious: Yes (Hospitalization)
  Sender: FDA-Public Use
  Company Number: US-BAYER-2015-431023

PATIENT
  Age: 22 Year
  Sex: Female

DRUGS (1)
  1. ACETYLSALICYLIC ACID({=100 MG) [Suspect]
     Active Substance: ASPIRIN
     Indication: PROPHYLAXIS OF ABORTION

REACTIONS (7)
  - Exposure during pregnancy [None]
  - Premature labour [None]
  - Off label use [None]
  - Pyelonephritis [None]
  - Nephrolithiasis [None]
  - Premature delivery [None]
  - Flank pain [None]
